FAERS Safety Report 10265378 (Version 1)
Quarter: 2014Q2

REPORT INFORMATION
  Report Type: Spontaneous
  Country: US (occurrence: None)
  Receive Date: 20140625
  Receipt Date: 20140625
  Transmission Date: 20141212
  Serious: Yes (Hospitalization)
  Sender: FDA-Public Use
  Company Number: None

PATIENT
  Age: 60 Year
  Sex: Male
  Weight: 82.74 kg

DRUGS (19)
  1. CETUXIMAB [Suspect]
     Indication: METASTATIC SQUAMOUS CELL CARCINOMA
     Dates: start: 20140501, end: 20140619
  2. PAZOPANIB [Suspect]
     Indication: METASTATIC SQUAMOUS CELL CARCINOMA
     Dates: start: 20140501, end: 20140622
  3. ABILIFY [Concomitant]
  4. ASPIRIN [Concomitant]
  5. ATORVASTATIN CALCIUM [Concomitant]
  6. CARVEDILOL [Concomitant]
  7. CYMBALTA [Concomitant]
  8. LIDOCAINE [Concomitant]
  9. MAGIC MOUTHWASH [Concomitant]
  10. MELOXICAM [Concomitant]
  11. MINOCYCLINE HCI [Concomitant]
  12. MIRALAX [Concomitant]
  13. MULTIVITAMINS [Concomitant]
  14. PLAVIX [Concomitant]
  15. PROCHLORPERAZEIN MALEATE [Concomitant]
  16. SERTRALINE HCI [Concomitant]
  17. STOLL SOFTENER [Concomitant]
  18. SUPER B COMPLEX [Concomitant]
  19. VOTRIENT [Concomitant]

REACTIONS (4)
  - Chest pain [None]
  - Dyspnoea [None]
  - Electrocardiogram QT prolonged [None]
  - Pulmonary mass [None]
